FAERS Safety Report 5761875-7 (Version None)
Quarter: 2008Q2

REPORT INFORMATION
  Report Type: 
  Country: None (occurrence: None)
  Receive Date: 20080602
  Receipt Date: 20080521
  Transmission Date: 20081010
  Serious: Yes (Life-Threatening, Hospitalization)
  Sender: FDA-Public Use
  Company Number: 20085177

PATIENT
  Sex: Female

DRUGS (2)
  1. LIORESAL [Suspect]
     Indication: MUSCLE SPASTICITY
     Dosage: 287 MCG, DAILY, INTRATHECAL
     Route: 037
  2. ORAL BACLOFEN [Concomitant]

REACTIONS (6)
  - AGITATION [None]
  - FALL [None]
  - LOSS OF CONSCIOUSNESS [None]
  - MUSCLE SPASTICITY [None]
  - MYDRIASIS [None]
  - UNRESPONSIVE TO STIMULI [None]
